FAERS Safety Report 17828676 (Version 2)
Quarter: 2020Q3

REPORT INFORMATION
  Report Type: Report from Study
  Country: FR (occurrence: FR)
  Receive Date: 20200527
  Receipt Date: 20200731
  Transmission Date: 20201102
  Serious: Yes (Death, Life-Threatening)
  Sender: FDA-Public Use
  Company Number: FR-INCYTE CORPORATION-2020IN004786

PATIENT

DRUGS (1)
  1. JAKAVI [Suspect]
     Active Substance: RUXOLITINIB
     Indication: MYELOFIBROSIS
     Dosage: 50 MG, QD (DAILY)
     Route: 048
     Dates: start: 20190516

REACTIONS (1)
  - Haematology test abnormal [Fatal]
